FAERS Safety Report 18709945 (Version 3)
Quarter: 2021Q1

REPORT INFORMATION
  Report Type: Report from Study
  Country: None (occurrence: GB)
  Receive Date: 20210106
  Receipt Date: 20210319
  Transmission Date: 20210419
  Serious: Yes (Death, Hospitalization)
  Sender: FDA-Public Use
  Company Number: GB-ABBVIE-21K-167-3717880-00

PATIENT
  Age: 74 Year
  Sex: Male

DRUGS (1)
  1. RISANKIZUMAB [Suspect]
     Active Substance: RISANKIZUMAB
     Indication: PSORIASIS
     Route: 058
     Dates: start: 20201015, end: 20210102

REACTIONS (4)
  - Skin discolouration [Fatal]
  - Livedo reticularis [Fatal]
  - Aortic occlusion [Fatal]
  - Gait inability [Fatal]

NARRATIVE: CASE EVENT DATE: 20210101
